FAERS Safety Report 8518037-X (Version None)
Quarter: 2012Q3

REPORT INFORMATION
  Report Type: 
  Country: None (occurrence: None)
  Receive Date: 20120718
  Receipt Date: 20110816
  Transmission Date: 20120928
  Serious: No
  Sender: FDA-Public Use
  Company Number: US-BRISTOL-MYERS SQUIBB COMPANY-15975303

PATIENT
  Sex: Female

DRUGS (2)
  1. TRAMADOL HCL [Suspect]
  2. COUMADIN [Suspect]
     Dates: start: 20110801

REACTIONS (1)
  - ASTHENIA [None]
